FAERS Safety Report 14475289 (Version 1)
Quarter: 2018Q1

REPORT INFORMATION
  Report Type: Spontaneous
  Country: US (occurrence: US)
  Receive Date: 20180201
  Receipt Date: 20180201
  Transmission Date: 20180509
  Serious: No
  Sender: FDA-Public Use
  Company Number: US-TAKEDA-2018TUS002362

PATIENT
  Age: 52 Year
  Sex: Female

DRUGS (3)
  1. TRINTELLIX [Suspect]
     Active Substance: VORTIOXETINE HYDROBROMIDE
     Dosage: 10 MG, UNK
     Route: 065
  2. TRINTELLIX [Suspect]
     Active Substance: VORTIOXETINE HYDROBROMIDE
     Indication: MAJOR DEPRESSION
     Dosage: 20 MG, UNK
     Route: 065
  3. TRINTELLIX [Suspect]
     Active Substance: VORTIOXETINE HYDROBROMIDE
     Indication: BIPOLAR II DISORDER
     Dosage: 15 MG, UNK
     Route: 065

REACTIONS (2)
  - Dyskinesia [Recovering/Resolving]
  - Tic [Recovering/Resolving]
